FAERS Safety Report 8348014-3 (Version None)
Quarter: 2012Q2

REPORT INFORMATION
  Report Type: 
  Country: None (occurrence: None)
  Receive Date: 20120509
  Receipt Date: 20120427
  Transmission Date: 20120825
  Serious: Yes (Death, Hospitalization, Other)
  Sender: FDA-Public Use
  Company Number: DE-ACTELION-A-CH2012-65060

PATIENT
  Age: 50 Year
  Sex: Female

DRUGS (1)
  1. TRACLEER [Suspect]
     Indication: DIGITAL ULCER
     Dosage: UNK
     Route: 048

REACTIONS (9)
  - DEATH [None]
  - LUNG DISORDER [None]
  - CONDITION AGGRAVATED [None]
  - BREAST CANCER [None]
  - SCIATICA [None]
  - DYSPNOEA [None]
  - VOMITING [None]
  - BACK PAIN [None]
  - RADIATION MUCOSITIS [None]
